FAERS Safety Report 4937125-8 (Version None)
Quarter: 2006Q1

REPORT INFORMATION
  Report Type: 
  Country: None (occurrence: None)
  Receive Date: 20060307
  Receipt Date: 20060307
  Transmission Date: 20060701
  Serious: Yes (Life-Threatening)
  Sender: FDA-Public Use
  Company Number: None

PATIENT
  Sex: Male
  Weight: 2.7216 kg

DRUGS (2)
  1. CELEXA [Suspect]
     Indication: ANXIETY
     Dosage: 20 MG QD PO   DURING PREGNANCY
     Route: 048
  2. CELEXA [Suspect]
     Indication: DEPRESSION
     Dosage: 20 MG QD PO   DURING PREGNANCY
     Route: 048

REACTIONS (6)
  - APGAR SCORE LOW [None]
  - DRUG EXPOSURE DURING PREGNANCY [None]
  - HYPOTONIA NEONATAL [None]
  - NEONATAL DISORDER [None]
  - NEONATAL HYPOXIA [None]
  - NEONATAL TACHYPNOEA [None]
